FAERS Safety Report 9132004 (Version 8)
Quarter: 2014Q2

REPORT INFORMATION
  Report Type: Report from Study
  Country: US (occurrence: US)
  Receive Date: 20130301
  Receipt Date: 20140522
  Transmission Date: 20141212
  Serious: Yes (Hospitalization)
  Sender: FDA-Public Use
  Company Number: US-JNJFOC-20130215945

PATIENT
  Age: 35 Year
  Sex: Male
  Weight: 78 kg

DRUGS (6)
  1. PALIPERIDONE PALMITATE [Suspect]
     Indication: SCHIZOPHRENIA
     Route: 030
     Dates: start: 20130121
  2. PALIPERIDONE PALMITATE [Suspect]
     Indication: SCHIZOPHRENIA
     Route: 030
     Dates: start: 20130114
  3. PALIPERIDONE PALMITATE [Suspect]
     Indication: SCHIZOPHRENIA
     Route: 030
  4. INVEGA [Concomitant]
     Indication: SCHIZOPHRENIA
     Route: 048
     Dates: start: 20130107
  5. ATIVAN [Concomitant]
     Indication: INSOMNIA
     Route: 048
     Dates: start: 20130112
  6. ATIVAN [Concomitant]
     Indication: AGITATION
     Route: 048
     Dates: start: 20130112

REACTIONS (1)
  - Schizophrenia [Recovered/Resolved]
